FAERS Safety Report 9421939 (Version 2)
Quarter: 2013Q3

REPORT INFORMATION
  Report Type: Spontaneous
  Country: US (occurrence: US)
  Receive Date: 20130726
  Receipt Date: 20130812
  Transmission Date: 20140515
  Serious: No
  Sender: FDA-Public Use
  Company Number: US-PFIZER INC-2013214795

PATIENT
  Sex: Female

DRUGS (2)
  1. AZOPT [Suspect]
     Dosage: UNK
  2. ALPHAGAN P [Interacting]
     Dosage: UNK

REACTIONS (5)
  - Drug ineffective [Unknown]
  - Hypertension [Unknown]
  - Hypotension [Unknown]
  - Malaise [Unknown]
  - Drug interaction [Unknown]
